FAERS Safety Report 9916052 (Version 1)
Quarter: 2014Q1

REPORT INFORMATION
  Report Type: Spontaneous
  Country: CA (occurrence: None)
  Receive Date: 20140219
  Receipt Date: 20140219
  Transmission Date: 20141002
  Serious: Yes (Other)
  Sender: FDA-Public Use
  Company Number: None

PATIENT
  Age: 40 Year
  Sex: Female
  Weight: 56.7 kg

DRUGS (2)
  1. PANTOPRAZOLE [Suspect]
     Indication: GASTROOESOPHAGEAL REFLUX DISEASE
     Route: 048
  2. PANTOPRAZOLE [Suspect]
     Indication: VIRAL INFECTION
     Route: 048

REACTIONS (6)
  - Tendon disorder [None]
  - Joint injury [None]
  - Condition aggravated [None]
  - Joint dislocation [None]
  - Decreased activity [None]
  - Muscle tightness [None]
